FAERS Safety Report 4532540-9 (Version None)
Quarter: 2004Q4

REPORT INFORMATION
  Report Type: 
  Country: None (occurrence: None)
  Receive Date: 20041206
  Receipt Date: 20040806
  Transmission Date: 20050328
  Serious: No
  Sender: FDA-Public Use
  Company Number: USA040874636

PATIENT
  Age: 64 Year
  Sex: Male
  Weight: 84 kg

DRUGS (10)
  1. ALIMTA [Suspect]
     Indication: MESOTHELIOMA
     Dates: start: 20040708
  2. CARBOPLATIN [Concomitant]
  3. CELEXA [Concomitant]
  4. OXYCONTIN [Concomitant]
  5. DECADRON [Concomitant]
  6. ANTIEMETIC [Concomitant]
  7. MULTI-VITAMIN [Concomitant]
  8. FOLIC ACID [Concomitant]
  9. VITAMIN B12 FOR INJECTION (CYANOCOBALAMIN) [Concomitant]
  10. LAXATIVE [Concomitant]

REACTIONS (10)
  - ANOREXIA [None]
  - ASTHENIA [None]
  - CONSTIPATION [None]
  - DIARRHOEA [None]
  - FATIGUE [None]
  - INFLUENZA LIKE ILLNESS [None]
  - NAUSEA [None]
  - PAIN [None]
  - PHARYNGOLARYNGEAL PAIN [None]
  - VOMITING [None]
